FAERS Safety Report 4530336-5 (Version None)
Quarter: 2004Q4

REPORT INFORMATION
  Report Type: 
  Country: None (occurrence: None)
  Receive Date: 20041217
  Receipt Date: 20041207
  Transmission Date: 20050328
  Serious: Yes (Other)
  Sender: FDA-Public Use
  Company Number: US-MERCK-0412USA01138

PATIENT
  Age: 63 Year
  Sex: Female

DRUGS (3)
  1. DECADRON [Suspect]
     Indication: CRANIOTOMY
     Route: 065
     Dates: start: 20031201, end: 20040101
  2. DECADRON [Suspect]
     Route: 065
     Dates: end: 20040123
  3. DECADRON [Suspect]
     Route: 065
     Dates: start: 20040123, end: 20040221

REACTIONS (7)
  - ABDOMINAL PAIN UPPER [None]
  - ASTHENIA [None]
  - DEEP VEIN THROMBOSIS [None]
  - HEPATIC ENZYME INCREASED [None]
  - MALAISE [None]
  - PYREXIA [None]
  - STEROID WITHDRAWAL SYNDROME [None]
